FAERS Safety Report 9762513 (Version 4)
Quarter: 2014Q2

REPORT INFORMATION
  Report Type: Spontaneous
  Country: IT (occurrence: None)
  Receive Date: 20131213
  Receipt Date: 20140415
  Transmission Date: 20141212
  Serious: Yes (Hospitalization, Other)
  Sender: FDA-Public Use
  Company Number: AUR-APL-2013-10433

PATIENT
  Age: 91 Year
  Sex: Female

DRUGS (11)
  1. CITALOPRAM (CITALOPRAM) [Suspect]
     Indication: PRODUCT USED FOR UNKNOWN INDICATION
     Dosage: (6 GTT, TOTAL)
     Route: 048
     Dates: start: 20130620, end: 20130620
  2. TAVOR (LORAZEPAM) [Suspect]
     Indication: INSOMNIA
     Route: 048
     Dates: start: 20130101, end: 20130621
  3. ELAN (ISOSSORBIDE MONONITRATE) [Concomitant]
  4. VENITRIN (GLYCERYL TRINITRATE) [Concomitant]
  5. CARDIOASPIRIN (ACETYLSALICYLIC ACID) [Concomitant]
  6. LASIX (FUROSEMIDE) [Concomitant]
  7. LANSOX (LANSOPRAZOLE) [Concomitant]
  8. RIOPAN (MAGALDRATE) [Concomitant]
  9. KANRENOL (POTASSIUM CANRENOATE) [Concomitant]
  10. CARVEDILOL (CARVEDILOL) [Concomitant]
  11. LEVOPRAID (SULPIRIDE) [Concomitant]

REACTIONS (3)
  - Sopor [None]
  - Aortic stenosis [None]
  - Aortic calcification [None]
